FAERS Safety Report 10154152 (Version 1)
Quarter: 2014Q2

REPORT INFORMATION
  Report Type: Report from Study
  Country: MX (occurrence: MX)
  Receive Date: 20140506
  Receipt Date: 20140506
  Transmission Date: 20141212
  Serious: Yes (Death, Other)
  Sender: FDA-Public Use
  Company Number: MX-ORION CORPORATION ORION PHARMA-ENTC2014-0152

PATIENT
  Age: 86 Year
  Sex: Female

DRUGS (4)
  1. STALEVO [Suspect]
     Dosage: 2 DAILY
     Route: 065
     Dates: end: 201403
  2. EXFORGE [Suspect]
     Indication: HYPERTENSION
     Dosage: STRENGTH: 160/10 MG
     Route: 048
     Dates: start: 20111115, end: 20130715
  3. EXFORGE [Suspect]
     Dosage: STRENGTH: 160/10 MG
     Route: 048
     Dates: start: 20130715
  4. EXFORGE [Suspect]
     Dosage: STRENGTH: 160/10 MG
     Route: 065
     Dates: end: 201403

REACTIONS (6)
  - Cerebral infarction [Fatal]
  - Fall [Unknown]
  - Hip fracture [Not Recovered/Not Resolved]
  - Hypermetabolism [Not Recovered/Not Resolved]
  - Senile dementia [Not Recovered/Not Resolved]
  - Diarrhoea [Not Recovered/Not Resolved]
